FAERS Safety Report 7793907-9 (Version None)
Quarter: 2011Q4

REPORT INFORMATION
  Report Type: 
  Country: None (occurrence: None)
  Receive Date: 20111004
  Receipt Date: 20110927
  Transmission Date: 20120403
  Serious: No
  Sender: FDA-Public Use
  Company Number: US-BIOGENIDEC-2011BI017475

PATIENT
  Age: 37 Year
  Sex: Female

DRUGS (1)
  1. TYSABRI [Suspect]
     Indication: MULTIPLE SCLEROSIS
     Route: 042
     Dates: start: 20110401

REACTIONS (10)
  - GASTROINTESTINAL DISORDER [None]
  - FLATULENCE [None]
  - MIGRAINE [None]
  - DIARRHOEA [None]
  - ARTHRALGIA [None]
  - ABDOMINAL PAIN UPPER [None]
  - ABDOMINAL DISTENSION [None]
  - VISION BLURRED [None]
  - FAECES DISCOLOURED [None]
  - MENSTRUATION IRREGULAR [None]
